FAERS Safety Report 4769952-4 (Version None)
Quarter: 2005Q3

REPORT INFORMATION
  Report Type: 
  Country: None (occurrence: None)
  Receive Date: 20050914
  Receipt Date: 20050914
  Transmission Date: 20060218
  Serious: Yes (Hospitalization)
  Sender: FDA-Public Use
  Company Number: None

PATIENT
  Age: 42 Year
  Sex: Male

DRUGS (1)
  1. NAPROSYN [Suspect]
     Indication: HEADACHE
     Dosage: 500 MG BID

REACTIONS (1)
  - GASTROINTESTINAL HAEMORRHAGE [None]
